FAERS Safety Report 10204133 (Version 1)
Quarter: 2014Q2

REPORT INFORMATION
  Report Type: Spontaneous
  Country: JP (occurrence: None)
  Receive Date: 20140523
  Receipt Date: 20140523
  Transmission Date: 20141212
  Serious: Yes (Death)
  Sender: FDA-Public Use
  Company Number: FK201401832

PATIENT
  Age: 76 Year
  Sex: Male

DRUGS (3)
  1. DEXAMETHASONE [Suspect]
     Indication: WALDENSTROM^S MACROGLOBULINAEMIA
     Route: 042
  2. BORTEZOMIB [Suspect]
     Indication: WALDENSTROM^S MACROGLOBULINAEMIA
     Route: 058
  3. RITUXIMAB [Suspect]
     Indication: WALDENSTROM^S MACROGLOBULINAEMIA
     Route: 042

REACTIONS (5)
  - Necrotising fasciitis [None]
  - Septic shock [None]
  - Pneumonia klebsiella [None]
  - Gastrointestinal inflammation [None]
  - Disease progression [None]
